FAERS Safety Report 5658621-4 (Version None)
Quarter: 2008Q1

REPORT INFORMATION
  Report Type: 
  Country: None (occurrence: None)
  Receive Date: 20080310
  Receipt Date: 20070409
  Transmission Date: 20080703
  Serious: Yes (Other)
  Sender: FDA-Public Use
  Company Number: US-BAYER-200710786BCC

PATIENT
  Age: 45 Year
  Sex: Male
  Weight: 129 kg

DRUGS (4)
  1. ALEVE [Suspect]
     Indication: MYALGIA
     Route: 048
  2. ALEVE [Suspect]
     Dosage: TOTAL DAILY DOSE: 440 MG  UNIT DOSE: 220 MG
     Route: 048
     Dates: start: 20070220, end: 20070304
  3. NIACIN [Suspect]
     Indication: DRUG USE FOR UNKNOWN INDICATION
     Route: 048
  4. SUPER NUTRITION FOR MEN MULTIVITAMIN [Concomitant]

REACTIONS (3)
  - DYSPNOEA [None]
  - HYPERSENSITIVITY [None]
  - RASH GENERALISED [None]
